FAERS Safety Report 6061497-7 (Version None)
Quarter: 2009Q1

REPORT INFORMATION
  Report Type: 
  Country: None (occurrence: None)
  Receive Date: 20090202
  Receipt Date: 20090122
  Transmission Date: 20090719
  Serious: Yes (Life-Threatening)
  Sender: FDA-Public Use
  Company Number: AT-ROCHE-603248

PATIENT
  Age: 54 Year
  Sex: Female

DRUGS (1)
  1. XELODA [Suspect]
     Dosage: DISCONTINUED.
     Route: 065
     Dates: start: 20081101, end: 20081201

REACTIONS (3)
  - DIARRHOEA [None]
  - MALNUTRITION [None]
  - PLEURAL EFFUSION [None]
